FAERS Safety Report 13414094 (Version 2)
Quarter: 2017Q2

REPORT INFORMATION
  Report Type: Spontaneous
  Country: IT (occurrence: IT)
  Receive Date: 20170407
  Receipt Date: 20170415
  Transmission Date: 20170830
  Serious: Yes (Hospitalization, Other)
  Sender: FDA-Public Use
  Company Number: IT-MYLANLABS-2017M1021390

PATIENT

DRUGS (1)
  1. DICLOFENAC [Suspect]
     Active Substance: DICLOFENAC
     Indication: OSTEOARTHRITIS
     Route: 065

REACTIONS (5)
  - Blood lactate dehydrogenase increased [Unknown]
  - Normochromic normocytic anaemia [Unknown]
  - Autoimmune haemolytic anaemia [Recovering/Resolving]
  - Coombs direct test positive [Unknown]
  - Thrombocytopenia [Unknown]
